FAERS Safety Report 12321374 (Version 2)
Quarter: 2016Q2

REPORT INFORMATION
  Report Type: Report from Study
  Country: PK (occurrence: PK)
  Receive Date: 20160502
  Receipt Date: 20160504
  Transmission Date: 20160815
  Serious: Yes (Death, Other)
  Sender: FDA-Public Use
  Company Number: PHHY2016PK059322

PATIENT
  Sex: Male
  Weight: 70 kg

DRUGS (2)
  1. TELMIS A [Concomitant]
     Indication: PRODUCT USED FOR UNKNOWN INDICATION
     Dosage: UNK
     Route: 065
  2. AFINITOR [Suspect]
     Active Substance: EVEROLIMUS
     Indication: RENAL CELL CARCINOMA
     Dosage: 5 MG, QD
     Route: 048
     Dates: start: 20160128

REACTIONS (3)
  - Depressed level of consciousness [Unknown]
  - Respiratory arrest [Fatal]
  - Loss of consciousness [Unknown]
